FAERS Safety Report 9456041 (Version 1)
Quarter: 2013Q3

REPORT INFORMATION
  Report Type: Spontaneous
  Country: CA (occurrence: CA)
  Receive Date: 20130813
  Receipt Date: 20130813
  Transmission Date: 20140515
  Serious: Yes (Other)
  Sender: FDA-Public Use
  Company Number: CA-TEVA-425902USA

PATIENT
  Age: 84 Year
  Sex: Male
  Weight: 74 kg

DRUGS (1)
  1. GALANTAMINE [Suspect]
     Dosage: 24 MILLIGRAM DAILY; EXTENDED RELEASE
     Route: 048

REACTIONS (3)
  - Drug ineffective [Unknown]
  - Mental status changes [Unknown]
  - Product substitution issue [Unknown]
